FAERS Safety Report 9975955 (Version 2)
Quarter: 2014Q2

REPORT INFORMATION
  Report Type: Spontaneous
  Country: US (occurrence: US)
  Receive Date: 20140306
  Receipt Date: 20140418
  Transmission Date: 20141212
  Serious: No
  Sender: FDA-Public Use
  Company Number: US-PFIZER INC-2014063681

PATIENT
  Age: 64 Year
  Sex: Female
  Weight: 87 kg

DRUGS (4)
  1. EFFEXOR XR [Suspect]
     Indication: DEPRESSION
     Dosage: 75 MG, TWO TIMES A DAY
     Route: 048
     Dates: start: 199908
  2. COREG [Concomitant]
     Indication: HYPERTENSION
     Dosage: UNK
  3. BENAZEPRIL [Concomitant]
     Indication: HYPERTENSION
     Dosage: UNK
  4. SYNTHROID [Concomitant]
     Dosage: UNK

REACTIONS (2)
  - Weight fluctuation [Unknown]
  - Weight decreased [Unknown]
